FAERS Safety Report 25740328 (Version 1)
Quarter: 2025Q3

REPORT INFORMATION
  Report Type: Spontaneous
  Country: US (occurrence: US)
  Receive Date: 20250829
  Receipt Date: 20250829
  Transmission Date: 20251021
  Serious: No
  Sender: PFIZER
  Company Number: US-PFIZER INC-202500172077

PATIENT
  Age: 64 Year
  Sex: Female

DRUGS (1)
  1. GENOTROPIN [Suspect]
     Active Substance: SOMATROPIN

REACTIONS (4)
  - Laboratory test abnormal [Unknown]
  - Blood 25-hydroxycholecalciferol decreased [Unknown]
  - Blood immunoglobulin G decreased [Unknown]
  - Eosinophil count decreased [Unknown]
